FAERS Safety Report 11189758 (Version 2)
Quarter: 2015Q2

REPORT INFORMATION
  Report Type: Spontaneous
  Country: US (occurrence: US)
  Receive Date: 20150615
  Receipt Date: 20150623
  Transmission Date: 20150821
  Serious: Yes (Hospitalization, Other)
  Sender: FDA-Public Use
  Company Number: US-BAXTER-2015BAX031133

PATIENT
  Age: 67 Year
  Sex: Female

DRUGS (2)
  1. DIANEAL LOW CALCIUM PERITONEAL DIALYSIS SOLUTION WITH DEXTROSE [Suspect]
     Active Substance: CALCIUM CHLORIDE\DEXTROSE\MAGNESIUM CHLORIDE\SODIUM CHLORIDE\SODIUM LACTATE
     Indication: PERITONEAL DIALYSIS
     Route: 033
  2. MARINOL [Suspect]
     Active Substance: DRONABINOL
     Indication: PRODUCT USED FOR UNKNOWN INDICATION
     Route: 065

REACTIONS (11)
  - Feeling abnormal [Unknown]
  - Decreased appetite [Recovering/Resolving]
  - Malaise [Unknown]
  - Renal cancer [Unknown]
  - Hepatic cancer [Unknown]
  - Procedural complication [Unknown]
  - Asthenia [Unknown]
  - Insomnia [Recovering/Resolving]
  - Recurrent cancer [Unknown]
  - Nausea [Recovering/Resolving]
  - Back disorder [Recovering/Resolving]

NARRATIVE: CASE EVENT DATE: 201412
